FAERS Safety Report 7597568-3 (Version None)
Quarter: 2011Q3

REPORT INFORMATION
  Report Type: 
  Country: None (occurrence: None)
  Receive Date: 20110708
  Receipt Date: 20110704
  Transmission Date: 20111222
  Serious: Yes (Death, Life-Threatening, Hospitalization)
  Sender: FDA-Public Use
  Company Number: HU-ROCHE-777244

PATIENT
  Sex: Female
  Weight: 55 kg

DRUGS (7)
  1. PERTUZUMAB [Suspect]
     Indication: BREAST CANCER METASTATIC
     Dosage: FORM: INFUSION.LOADING DOSE.
     Route: 042
     Dates: start: 20110428
  2. TRASTUZUMAB [Suspect]
     Indication: BREAST CANCER METASTATIC
     Dosage: FORM: INFUSION. LOADING DOSE: 8MG/KG.
     Route: 042
     Dates: start: 20110429
  3. CAPECITABINE [Suspect]
     Indication: BREAST CANCER METASTATIC
     Route: 048
     Dates: start: 20110429, end: 20110511
  4. CAPECITABINE [Suspect]
     Route: 048
     Dates: start: 20110512, end: 20110512
  5. PERTUZUMAB [Suspect]
     Dosage: MAINTAINANCE DOSE.
     Route: 042
     Dates: start: 20110519, end: 20110609
  6. CAPECITABINE [Suspect]
     Dosage: FREQUENCY: DAILY
     Route: 048
     Dates: end: 20110609
  7. TRASTUZUMAB [Suspect]
     Dosage: MAINTAINANCE DOSE.
     Route: 042
     Dates: start: 20110520, end: 20110609

REACTIONS (3)
  - FATIGUE [None]
  - PANCYTOPENIA [None]
  - DIARRHOEA [None]
